FAERS Safety Report 8055851-1 (Version None)
Quarter: 2012Q1

REPORT INFORMATION
  Report Type: 
  Country: None (occurrence: None)
  Receive Date: 20120119
  Receipt Date: 20120119
  Transmission Date: 20120608
  Serious: Yes (Disabling)
  Sender: FDA-Public Use
  Company Number: None

PATIENT
  Sex: Male

DRUGS (1)
  1. OPTIRAY 160 [Suspect]
     Indication: COMPUTERISED TOMOGRAM
     Dosage: IOVERSOL 100 ML
     Route: 040
     Dates: start: 20110918, end: 20110918

REACTIONS (2)
  - SNEEZING [None]
  - LIP SWELLING [None]
